FAERS Safety Report 9910195 (Version 2)
Quarter: 2014Q1

REPORT INFORMATION
  Report Type: Spontaneous
  Country: US (occurrence: None)
  Receive Date: 20140212
  Receipt Date: 20140225
  Transmission Date: 20141002
  Serious: Yes (Death, Hospitalization)
  Sender: FDA-Public Use
  Company Number: 2014-US-001432

PATIENT
  Age: 60 Year
  Sex: Male

DRUGS (1)
  1. PRIALT [Suspect]
     Indication: SPINAL PAIN
     Dosage: 0.02 UG, QH, INTRATHECAL

REACTIONS (9)
  - Cardiac disorder [None]
  - Septic shock [None]
  - Pneumonia [None]
  - Brain natriuretic peptide increased [None]
  - Blood creatine phosphokinase increased [None]
  - Myocardial ischaemia [None]
  - Blood pressure inadequately controlled [None]
  - Bradycardia [None]
  - Cardiac arrest [None]
